FAERS Safety Report 13449462 (Version 1)
Quarter: 2017Q2

REPORT INFORMATION
  Report Type: Spontaneous
  Country: US (occurrence: US)
  Receive Date: 20170417
  Receipt Date: 20170417
  Transmission Date: 20170830
  Serious: No
  Sender: FDA-Public Use
  Company Number: GXBR2017US001094

PATIENT
  Age: 4 Year
  Sex: Female

DRUGS (5)
  1. GLUCAGON EMERGENCY KIT [Concomitant]
     Active Substance: GLUCAGON
     Dosage: 1 MG, UNK
  2. BASAGLAR [Concomitant]
     Active Substance: INSULIN GLARGINE
     Dosage: UNK DF, UNK
  3. AMOXICILLIN. [Suspect]
     Active Substance: AMOXICILLIN
     Indication: PRODUCT USED FOR UNKNOWN INDICATION
     Dosage: 1 TSP, Q12H X 10D
     Route: 048
     Dates: start: 20170308
  4. NOVOLOG [Concomitant]
     Active Substance: INSULIN ASPART
     Dosage: UNK DF, UNK
  5. ZOFRAN [Concomitant]
     Active Substance: ONDANSETRON HYDROCHLORIDE
     Dosage: 4 UNK, UNK

REACTIONS (1)
  - Blood glucose increased [Not Recovered/Not Resolved]

NARRATIVE: CASE EVENT DATE: 20170309
